FAERS Safety Report 17991603 (Version 3)
Quarter: 2020Q3

REPORT INFORMATION
  Report Type: Report from Study
  Country: BR (occurrence: BR)
  Receive Date: 20200707
  Receipt Date: 20200724
  Transmission Date: 20201103
  Serious: Yes (Hospitalization, Other)
  Sender: FDA-Public Use
  Company Number: NVSC2020BR191372

PATIENT
  Age: 80 Year
  Sex: Female
  Weight: 82 kg

DRUGS (1)
  1. GALVUS MET [Suspect]
     Active Substance: METFORMIN HYDROCHLORIDE\VILDAGLIPTIN
     Indication: DIABETES MELLITUS
     Dosage: 1 DF (50/1000), BID 1 TABLET BY MORNING ANOTHER AT NIGHT, (STARTED AROUND 05 OR 10 YEARS)
     Route: 065

REACTIONS (5)
  - Fall [Recovering/Resolving]
  - Lower limb fracture [Recovering/Resolving]
  - Ligament sprain [Recovering/Resolving]
  - Spinal disorder [Recovering/Resolving]
  - Limb injury [Recovering/Resolving]

NARRATIVE: CASE EVENT DATE: 201908
